FAERS Safety Report 9723788 (Version 1)
Quarter: 2013Q4

REPORT INFORMATION
  Report Type: Spontaneous
  Country: GB (occurrence: GB)
  Receive Date: 20131202
  Receipt Date: 20131202
  Transmission Date: 20140711
  Serious: Yes (Death, Hospitalization, Other)
  Sender: FDA-Public Use
  Company Number: GB-PFIZER INC-2013340505

PATIENT
  Age: 47 Year
  Sex: Female

DRUGS (15)
  1. MYCOPHENOLATE MOFETIL [Suspect]
     Indication: INTERSTITIAL LUNG DISEASE
     Dosage: 500, MG MILLIGRAM(S), 2, 1, DAYS
     Route: 048
     Dates: start: 20130515, end: 20130829
  2. STELARA [Suspect]
     Indication: PSORIASIS
     Dosage: 90, MG
     Route: 058
     Dates: start: 20130717, end: 20130823
  3. PREDNISOLONE [Suspect]
     Dosage: UNK
     Route: 048
     Dates: start: 201202
  4. ALENDRONIC ACID [Concomitant]
     Dosage: UNK
  5. SERETIDE [Concomitant]
     Dosage: UNK
  6. LEVOTHYROXINE [Concomitant]
     Dosage: UNK
  7. OMEPRAZOLE [Concomitant]
     Dosage: UNK
  8. SERTRALINE [Concomitant]
     Dosage: UNK
  9. URSODEOXYCHOLIC ACID [Concomitant]
     Dosage: UNK
  10. NAPROXEN [Concomitant]
     Dosage: UNK
  11. CODEINE PHOSPHATE [Concomitant]
     Dosage: UNK
  12. KETOROLAC [Concomitant]
     Dosage: UNK
  13. MAXITROL [Concomitant]
     Dosage: UNK
  14. PROPRANOLOL [Concomitant]
     Dosage: UNK
  15. CALCICHEW-D3 [Concomitant]
     Dosage: UNK

REACTIONS (7)
  - Encephalitis [Fatal]
  - Status epilepticus [Fatal]
  - Septic arthritis staphylococcal [Unknown]
  - Respiratory failure [Unknown]
  - Convulsion [Unknown]
  - Candida infection [Unknown]
  - Brain oedema [Unknown]
